FAERS Safety Report 16692210 (Version 1)
Quarter: 2019Q3

REPORT INFORMATION
  Report Type: Spontaneous
  Country: TR (occurrence: TR)
  Receive Date: 20190812
  Receipt Date: 20190812
  Transmission Date: 20191004
  Serious: Yes (Other)
  Sender: FDA-Public Use
  Company Number: PHHY2019TR181253

PATIENT
  Age: 73 Year
  Sex: Female
  Weight: 51 kg

DRUGS (4)
  1. LIDOCAINE. [Concomitant]
     Active Substance: LIDOCAINE
     Indication: LOCAL ANAESTHESIA
     Dosage: 2 ML, UNK
     Route: 065
  2. METHYLPREDNISOLONE. [Suspect]
     Active Substance: METHYLPREDNISOLONE
     Indication: PAIN
     Dosage: 80 MG, UNK
     Route: 008
  3. SALINE [Concomitant]
     Active Substance: SODIUM CHLORIDE
     Indication: PAIN
     Dosage: 6 ML, UNK
     Route: 065
  4. SALINE [Concomitant]
     Active Substance: SODIUM CHLORIDE
     Indication: LOCAL ANAESTHESIA

REACTIONS (8)
  - Dermatitis bullous [Unknown]
  - Back pain [Recovered/Resolved]
  - Herpes zoster [Unknown]
  - Pruritus [Unknown]
  - Pain [Recovered/Resolved]
  - Pain in extremity [Recovered/Resolved]
  - Post herpetic neuralgia [Recovered/Resolved]
  - Product use in unapproved indication [Unknown]
